FAERS Safety Report 20034810 (Version 1)
Quarter: 2021Q4

REPORT INFORMATION
  Report Type: Spontaneous
  Country: CA (occurrence: CA)
  Receive Date: 20211104
  Receipt Date: 20211104
  Transmission Date: 20220303
  Serious: Yes (Other)
  Sender: FDA-Public Use
  Company Number: CA-PFIZER INC-202101458199

PATIENT

DRUGS (4)
  1. METHOTREXATE SODIUM [Suspect]
     Active Substance: METHOTREXATE SODIUM
     Route: 065
  2. HUMIRA [Suspect]
     Active Substance: ADALIMUMAB
     Dosage: 40 MG, CYCLIC (1 EVERY 2 DAYS)
     Route: 058
  3. RINVOQ [Suspect]
     Active Substance: UPADACITINIB
     Dosage: 15 MG, 1X/DAY
     Route: 048
  4. RINVOQ [Suspect]
     Active Substance: UPADACITINIB
     Dosage: 30 MG, 1X/DAY
     Route: 048

REACTIONS (4)
  - Cardiovascular disorder [Unknown]
  - Infection [Unknown]
  - Opportunistic infection [Unknown]
  - Skin cancer [Unknown]
